FAERS Safety Report 19223609 (Version 2)
Quarter: 2021Q2

REPORT INFORMATION
  Report Type: Spontaneous
  Country: US (occurrence: US)
  Receive Date: 20210506
  Receipt Date: 20210607
  Transmission Date: 20210717
  Serious: No
  Sender: FDA-Public Use
  Company Number: US-ASTRAZENECA-2021A349678

PATIENT
  Sex: Male

DRUGS (1)
  1. BYDUREON BCISE [Suspect]
     Active Substance: EXENATIDE
     Indication: TYPE 2 DIABETES MELLITUS
     Route: 058
     Dates: start: 20181121

REACTIONS (8)
  - Injection site mass [Unknown]
  - Body height decreased [Unknown]
  - Wrong technique in device usage process [Unknown]
  - Needle issue [Unknown]
  - Injection site indentation [Unknown]
  - Device leakage [Unknown]
  - Weight increased [Unknown]
  - Device issue [Unknown]
